FAERS Safety Report 5744121-X (Version None)
Quarter: 2008Q2

REPORT INFORMATION
  Report Type: 
  Country: None (occurrence: None)
  Receive Date: 20080520
  Receipt Date: 20080509
  Transmission Date: 20081010
  Serious: Yes (Other)
  Sender: FDA-Public Use
  Company Number: B0515693A

PATIENT

DRUGS (1)
  1. ROSIGLITAZONE [Suspect]
     Route: 065

REACTIONS (1)
  - ACCELERATED HYPERTENSION [None]
